FAERS Safety Report 15152282 (Version 2)
Quarter: 2018Q3

REPORT INFORMATION
  Report Type: Spontaneous
  Country: US (occurrence: US)
  Receive Date: 20180717
  Receipt Date: 20180913
  Transmission Date: 20181010
  Serious: No
  Sender: FDA-Public Use
  Company Number: US-ALK-ABELLO A/S-2018AA001986

PATIENT

DRUGS (1)
  1. HISTATROL [Suspect]
     Active Substance: HISTAMINE PHOSPHATE
     Indication: PRODUCT USED FOR UNKNOWN INDICATION
     Dosage: UNK
     Dates: start: 20180614

REACTIONS (1)
  - False negative investigation result [Unknown]

NARRATIVE: CASE EVENT DATE: 20180614
